FAERS Safety Report 14146639 (Version 2)
Quarter: 2017Q4

REPORT INFORMATION
  Report Type: Spontaneous
  Country: UA (occurrence: UA)
  Receive Date: 20171031
  Receipt Date: 20171114
  Transmission Date: 20180321
  Serious: Yes (Other)
  Sender: FDA-Public Use
  Company Number: UA-ASTRAZENECA-2017SF10100

PATIENT
  Age: 24281 Day
  Sex: Female

DRUGS (5)
  1. ASPIRIN. [Concomitant]
     Active Substance: ASPIRIN
  2. RAMIPRIL. [Concomitant]
     Active Substance: RAMIPRIL
  3. METOPROLOL. [Concomitant]
     Active Substance: METOPROLOL
  4. HEPARIN [Concomitant]
     Active Substance: HEPARIN SODIUM
  5. BRILINTA [Suspect]
     Active Substance: TICAGRELOR
     Dosage: 90
     Route: 048
     Dates: start: 20171008

REACTIONS (2)
  - Vascular stent thrombosis [Unknown]
  - Acute myocardial infarction [Unknown]

NARRATIVE: CASE EVENT DATE: 20171008
